FAERS Safety Report 23262074 (Version 2)
Quarter: 2023Q4

REPORT INFORMATION
  Report Type: Report from Study
  Country: CO (occurrence: CO)
  Receive Date: 20231205
  Receipt Date: 20231222
  Transmission Date: 20240110
  Serious: Yes (Life-Threatening, Hospitalization, Other)
  Sender: FDA-Public Use
  Company Number: CO-ABBVIE-5524736

PATIENT
  Sex: Female

DRUGS (3)
  1. VENCLEXTA [Suspect]
     Active Substance: VENETOCLAX
     Indication: Chronic lymphocytic leukaemia
     Dosage: FORM STRENGTH 100MG
     Route: 048
     Dates: start: 20230823, end: 20231120
  2. PERINDOPRIL [Concomitant]
     Active Substance: PERINDOPRIL
     Indication: Hypertension
     Dates: start: 202311
  3. PERINDOPRIL [Concomitant]
     Active Substance: PERINDOPRIL
     Indication: Hypertension
     Dosage: 10 MILLIGRAM
     Dates: start: 2017, end: 2023

REACTIONS (8)
  - Discouragement [Recovering/Resolving]
  - Hospitalisation [Recovered/Resolved]
  - Malaise [Recovering/Resolving]
  - Platelet count decreased [Recovering/Resolving]
  - Hypertension [Recovering/Resolving]
  - Visual impairment [Recovering/Resolving]
  - Pulse pressure increased [Recovering/Resolving]
  - Full blood count abnormal [Recovering/Resolving]

NARRATIVE: CASE EVENT DATE: 20230101
